FAERS Safety Report 4733228-1 (Version None)
Quarter: 2005Q3

REPORT INFORMATION
  Report Type: 
  Country: None (occurrence: None)
  Receive Date: 20050721
  Receipt Date: 20050518
  Transmission Date: 20060218
  Serious: No
  Sender: FDA-Public Use
  Company Number: 2005SP000875

PATIENT
  Age: 85 Year
  Sex: Female
  Weight: 49.4421 kg

DRUGS (1)
  1. LUNESTA [Suspect]
     Indication: INSOMNIA
     Dosage: 2 MG;1X;UNKNOWN
     Route: 065
     Dates: start: 20050517, end: 20050517

REACTIONS (2)
  - HALLUCINATION [None]
  - PARADOXICAL DRUG REACTION [None]
